FAERS Safety Report 7334101-5 (Version None)
Quarter: 2011Q1

REPORT INFORMATION
  Report Type: 
  Country: None (occurrence: None)
  Receive Date: 20110307
  Receipt Date: 20110221
  Transmission Date: 20110831
  Serious: Yes (Death)
  Sender: FDA-Public Use
  Company Number: US-CELGENEUS-163-21880-11022567

PATIENT
  Sex: Female

DRUGS (7)
  1. CALCIUM [Concomitant]
     Route: 065
  2. DILAUDID [Concomitant]
     Route: 065
  3. METOPROLOL [Concomitant]
     Route: 065
  4. IRON [Concomitant]
     Route: 065
  5. ADVAIR DISKUS 100/50 [Concomitant]
     Route: 065
  6. OXYCODONE [Concomitant]
     Route: 065
  7. REVLIMID [Suspect]
     Indication: MULTIPLE MYELOMA
     Dosage: 25 MILLIGRAM
     Route: 048
     Dates: start: 20110112, end: 20110101

REACTIONS (1)
  - DEATH [None]
